FAERS Safety Report 5764029-3 (Version None)
Quarter: 2008Q2

REPORT INFORMATION
  Report Type: 
  Country: None (occurrence: None)
  Receive Date: 20080602
  Receipt Date: 20080129
  Transmission Date: 20081010
  Serious: No
  Sender: FDA-Public Use
  Company Number: PHEH2007US13980

PATIENT
  Sex: Female

DRUGS (5)
  1. TEKTURNA [Suspect]
     Indication: HYPERTENSION
     Dosage: 300 MG
  2. COUMADIN [Suspect]
  3. MICARDIS [Suspect]
  4. ATENOLOL [Suspect]
  5. LORAZEPAM [Suspect]

REACTIONS (2)
  - FATIGUE [None]
  - OEDEMA PERIPHERAL [None]
